FAERS Safety Report 4338998-2 (Version None)
Quarter: 2004Q2

REPORT INFORMATION
  Report Type: 
  Country: None (occurrence: None)
  Receive Date: 20040409
  Receipt Date: 20040405
  Transmission Date: 20050107
  Serious: Yes (Other)
  Sender: FDA-Public Use
  Company Number: UKP04000140

PATIENT
  Age: 78 Year
  Sex: Female
  Weight: 75 kg

DRUGS (9)
  1. ACTONEL [Suspect]
     Indication: OSTEOPOROSIS
     Dosage: 35 MG, 1/ WEEK, ORAL
     Route: 048
     Dates: start: 20040323, end: 20040329
  2. BISOPROLOL FUMARATE [Concomitant]
  3. ISOSORBIDE DINITRATE [Concomitant]
  4. RAMIPRIL [Concomitant]
  5. SIMVASTATIN [Concomitant]
  6. RANITIDINE [Concomitant]
  7. QUININE SULPHATE (QUININE SULFATE) [Concomitant]
  8. CO-CODAMOL (CODEINE PHOSPHATE) [Concomitant]
  9. STIEDEX (DESOXIMETASONE) [Concomitant]

REACTIONS (1)
  - VASCULITIC RASH [None]
